FAERS Safety Report 8239075-0 (Version None)
Quarter: 2012Q1

REPORT INFORMATION
  Report Type: 
  Country: None (occurrence: None)
  Receive Date: 20120327
  Receipt Date: 20120321
  Transmission Date: 20120608
  Serious: Yes (Other)
  Sender: FDA-Public Use
  Company Number: BE-ASTRAZENECA-2012SE19611

PATIENT
  Age: 58 Year
  Sex: Female

DRUGS (5)
  1. SEROQUEL XR [Suspect]
     Indication: DYSTHYMIC DISORDER
     Route: 048
     Dates: start: 20120316, end: 20120319
  2. INVEGA [Concomitant]
     Dates: start: 20110101
  3. FLUOXETINE [Concomitant]
  4. FORTAL [Concomitant]
     Dosage: TWO TIMES A DAY
  5. EFFEXOR [Concomitant]

REACTIONS (3)
  - DEPERSONALISATION [None]
  - DYSTHYMIC DISORDER [None]
  - GLIOMA [None]
